FAERS Safety Report 19932321 (Version 10)
Quarter: 2023Q1

REPORT INFORMATION
  Report Type: Report from Study
  Country: KR (occurrence: None)
  Receive Date: 20211008
  Receipt Date: 20230211
  Transmission Date: 20230418
  Serious: Yes (Hospitalization)
  Sender: FDA-Public Use
  Company Number: KR-ROCHE-2927612

PATIENT
  Age: 79 Year
  Sex: Male
  Weight: 43.3 kg

DRUGS (23)
  1. ATEZOLIZUMAB [Suspect]
     Active Substance: ATEZOLIZUMAB
     Indication: Oesophageal cancer metastatic
     Dosage: ON 27/SEP/2021, MOST RECENT DOSE OF ATEZOLIZUMAB WAS ADMINISTERED PRIOR TO AE (1200 MG).
     Route: 042
     Dates: start: 20210817
  2. CISPLATIN [Suspect]
     Active Substance: CISPLATIN
     Indication: Oesophageal cancer metastatic
     Dosage: ON 27/SEP/2021, MOST RECENT DOSE OF CISPLATIN (115.2 MG) WAS ADMINISTERED PRIOR TO AE.
     Route: 042
     Dates: start: 20210817
  3. FLUOROURACIL [Suspect]
     Active Substance: FLUOROURACIL
     Indication: Oesophageal cancer metastatic
     Dosage: ON 29/SEP/2021, MOST RECENT DOSE OF 5-FLUOROURACIL (3456 MG) WAS ADMINISTERED PRIOR TO AE. LAST DOSE
     Route: 042
     Dates: start: 20210817
  4. TANTUM [Concomitant]
     Active Substance: BENZYDAMINE HYDROCHLORIDE
     Route: 061
     Dates: start: 20210817
  5. EMEND [Concomitant]
     Active Substance: APREPITANT
     Route: 042
     Dates: start: 20210817, end: 20210927
  6. ALOXI [Concomitant]
     Active Substance: PALONOSETRON HYDROCHLORIDE
     Route: 042
     Dates: start: 20210817, end: 20210927
  7. LASIX [Concomitant]
     Active Substance: FUROSEMIDE
     Route: 048
     Dates: start: 20210817, end: 20210927
  8. METOCLOPRAMIDE HYDROCHLORIDE [Concomitant]
     Active Substance: METOCLOPRAMIDE HYDROCHLORIDE
     Indication: Nausea
     Route: 042
     Dates: start: 20210819, end: 20211005
  9. PENIRAMIN [Concomitant]
     Indication: Nausea
     Route: 042
     Dates: start: 20210819, end: 20211005
  10. ATIVAN [Concomitant]
     Active Substance: LORAZEPAM
     Indication: Nausea
     Route: 042
     Dates: start: 20210819, end: 20211005
  11. AMINO ACIDS\DEXTROSE\ELECTROLYTES NOS\SOYBEAN OIL\VITAMINS [Concomitant]
     Active Substance: AMINO ACIDS\DEXTROSE\ELECTROLYTES NOS\SOYBEAN OIL\VITAMINS
     Route: 042
     Dates: start: 20210906, end: 20210911
  12. LOPERAMIDE [Concomitant]
     Active Substance: LOPERAMIDE
     Indication: Diarrhoea
     Route: 048
     Dates: start: 20210820
  13. FURTMAN [Concomitant]
     Route: 042
     Dates: start: 20210906, end: 20210911
  14. XANAX [Concomitant]
     Active Substance: ALPRAZOLAM
     Indication: Anxiety
     Route: 048
     Dates: start: 20210907
  15. PANTOPRAZOLE SODIUM [Concomitant]
     Active Substance: PANTOPRAZOLE SODIUM
     Indication: Dyspepsia
     Route: 048
     Dates: start: 20210910
  16. FOTAGEL [Concomitant]
     Indication: Diarrhoea
     Route: 048
     Dates: start: 20210910
  17. WINUF [Concomitant]
     Route: 042
     Dates: start: 20210926, end: 20211005
  18. URSODIOL [Concomitant]
     Active Substance: URSODIOL
     Indication: Aspartate aminotransferase increased
     Route: 048
     Dates: start: 20210926, end: 20211006
  19. LAMINA-G [Concomitant]
     Indication: Dyspepsia
     Route: 048
     Dates: start: 20210927
  20. BOLGRE [Concomitant]
     Indication: Anaemia
     Route: 048
     Dates: start: 20211002
  21. MEDILAC-S [Concomitant]
     Indication: Dyspepsia
     Route: 048
     Dates: start: 20211005
  22. GASTER (SOUTH KOREA) [Concomitant]
     Indication: Dyspepsia
     Route: 042
     Dates: start: 20210909, end: 20210909
  23. SODIUM CHLORIDE [Concomitant]
     Active Substance: SODIUM CHLORIDE
     Route: 042
     Dates: start: 20210817, end: 20211019

REACTIONS (1)
  - Pneumonia [Recovered/Resolved]

NARRATIVE: CASE EVENT DATE: 20210930
